FAERS Safety Report 4278260-X (Version None)
Quarter: 2004Q1

REPORT INFORMATION
  Report Type: 
  Country: None (occurrence: None)
  Receive Date: 20040122
  Receipt Date: 20040122
  Transmission Date: 20041129
  Serious: Yes (Hospitalization)
  Sender: FDA-Public Use
  Company Number: None

PATIENT
  Age: 56 Year
  Sex: Female

DRUGS (1)
  1. AUGMENTIN '875' [Suspect]
     Indication: TOOTH INFECTION
     Dosage: 1 PO Q 12 H
     Route: 048
     Dates: start: 20030106, end: 20030116

REACTIONS (4)
  - ABDOMINAL PAIN LOWER [None]
  - CLOSTRIDIUM COLITIS [None]
  - DIARRHOEA [None]
  - PYREXIA [None]
